FAERS Safety Report 6840586-0 (Version None)
Quarter: 2010Q3

REPORT INFORMATION
  Report Type: 
  Country: None (occurrence: None)
  Receive Date: 20100714
  Receipt Date: 20100702
  Transmission Date: 20110219
  Serious: Yes (Hospitalization)
  Sender: FDA-Public Use
  Company Number: B0663562A

PATIENT
  Sex: Female

DRUGS (11)
  1. ZELITREX [Suspect]
     Dosage: 3G PER DAY
     Route: 048
     Dates: start: 20100527, end: 20100604
  2. TAHOR [Suspect]
     Dosage: 40MG PER DAY
     Route: 048
     Dates: start: 20010101, end: 20100604
  3. NEORAL [Suspect]
     Dosage: 70MG TWICE PER DAY
     Route: 048
     Dates: start: 19910101
  4. TRIATEC [Concomitant]
     Indication: PRODUCT USED FOR UNKNOWN INDICATION
     Dosage: 5MG PER DAY
     Route: 048
     Dates: end: 20100604
  5. FOSAMAX [Concomitant]
     Indication: OSTEOPOROSIS
     Dosage: 1TAB WEEKLY
     Route: 048
     Dates: end: 20100604
  6. CORTANCYL [Concomitant]
     Dosage: 10MG PER DAY
     Route: 048
  7. NEBIVOLOL [Concomitant]
     Indication: PRODUCT USED FOR UNKNOWN INDICATION
     Dosage: 5MG PER DAY
     Route: 048
  8. ZANIDIP [Concomitant]
     Indication: PRODUCT USED FOR UNKNOWN INDICATION
     Dosage: 10MG PER DAY
     Route: 065
  9. CALCIDOSE VIT D [Concomitant]
     Indication: PRODUCT USED FOR UNKNOWN INDICATION
     Dosage: 1UNIT PER DAY
     Route: 065
  10. NEXIUM [Concomitant]
     Indication: PRODUCT USED FOR UNKNOWN INDICATION
     Dosage: 20MG PER DAY
     Route: 065
  11. XANAX [Concomitant]
     Indication: PRODUCT USED FOR UNKNOWN INDICATION
     Dosage: .5MG PER DAY
     Route: 065

REACTIONS (11)
  - ASTHENIA [None]
  - CONDITION AGGRAVATED [None]
  - CYTOLYTIC HEPATITIS [None]
  - GENERAL PHYSICAL HEALTH DETERIORATION [None]
  - HYPOGAMMAGLOBULINAEMIA [None]
  - IMMUNOSUPPRESSANT DRUG LEVEL INCREASED [None]
  - MYALGIA [None]
  - OVERDOSE [None]
  - RENAL FAILURE CHRONIC [None]
  - RHABDOMYOLYSIS [None]
  - SOMNOLENCE [None]
